FAERS Safety Report 10362901 (Version 1)
Quarter: 2014Q3

REPORT INFORMATION
  Report Type: Spontaneous
  Country: IT (occurrence: None)
  Receive Date: 20140731
  Receipt Date: 20140731
  Transmission Date: 20150326
  Serious: Yes (Hospitalization)
  Sender: FDA-Public Use
  Company Number: AUR-APL-2014-08121

PATIENT
  Age: 24 Year
  Sex: Female

DRUGS (4)
  1. AMOXICILLIN (AMOXICILLIN) UNKNOWN [Suspect]
     Active Substance: AMOXICILLIN
     Indication: PRODUCT USED FOR UNKNOWN INDICATION
     Dosage: 7 G, TOTAL , ORAL 03/31/2014 TO 03/31/2014 THERAPY DATES
     Route: 048
     Dates: start: 20140331, end: 20140331
  2. TACHIPIRINA [Suspect]
     Active Substance: ACETAMINOPHEN
     Indication: PRODUCT USED FOR UNKNOWN INDICATION
     Dosage: 5 G, TOTAL, ORAL 03/31/2014 TO 03/31/2014 THERAPY DATES
     Route: 048
     Dates: start: 20140331, end: 20140331
  3. DICLOFENAC (DICLOFENAC) [Suspect]
     Active Substance: DICLOFENAC SODIUM
     Indication: PRODUCT USED FOR UNKNOWN INDICATION
     Dosage: 500 MG, TOTAL, ORAL 03/31/2014 TO 03/31/2014 THERAPY DATES
     Dates: start: 20140331, end: 20140331
  4. IBUPROFEN. [Suspect]
     Active Substance: IBUPROFEN
     Indication: PRODUCT USED FOR UNKNOWN INDICATION
     Dosage: 6 G, TOTAL, ORAL 03/31/2014 TO 03/31/2014 THERAPY DATES
     Route: 048
     Dates: start: 20140331, end: 20140331

REACTIONS (2)
  - Sopor [None]
  - Drug abuse [None]

NARRATIVE: CASE EVENT DATE: 20140531
